FAERS Safety Report 7668834-8 (Version None)
Quarter: 2011Q3

REPORT INFORMATION
  Report Type: 
  Country: None (occurrence: None)
  Receive Date: 20110808
  Receipt Date: 20110801
  Transmission Date: 20111222
  Serious: Yes (Other)
  Sender: FDA-Public Use
  Company Number: JP-ABBOTT-11P-087-0702864-00

PATIENT
  Age: 60 Year
  Sex: Male
  Weight: 66.8 kg

DRUGS (10)
  1. HUMIRA [Suspect]
     Indication: CROHN'S DISEASE
     Route: 058
     Dates: start: 20101208, end: 20101208
  2. CLOSTRIDIUM BUTYRICUM [Concomitant]
     Indication: CROHN'S DISEASE
  3. ALBUMIN TANNATE [Concomitant]
     Indication: CROHN'S DISEASE
  4. HUMIRA [Suspect]
     Dates: start: 20101222, end: 20101222
  5. POLYCARBOPHIL CALCIUM [Concomitant]
     Indication: CROHN'S DISEASE
  6. CODEINE SULFATE [Concomitant]
     Indication: CROHN'S DISEASE
     Route: 048
  7. HUMIRA [Suspect]
     Dates: start: 20110104
  8. AZATHIOPRINE [Concomitant]
     Indication: PRODUCT USED FOR UNKNOWN INDICATION
  9. MESALAMINE [Concomitant]
     Indication: CROHN'S DISEASE
  10. TPN [Concomitant]
     Indication: CROHN'S DISEASE
     Route: 048

REACTIONS (2)
  - EYELID OEDEMA [None]
  - DEAFNESS [None]
